FAERS Safety Report 9342915 (Version 2)
Quarter: 2013Q3

REPORT INFORMATION
  Report Type: Report from Study
  Country: DE (occurrence: DE)
  Receive Date: 20130611
  Receipt Date: 20130819
  Transmission Date: 20140515
  Serious: Yes (Other)
  Sender: FDA-Public Use
  Company Number: DE-GLAXOSMITHKLINE-Z0017129A

PATIENT
  Age: 61 Year
  Sex: Male
  Weight: 75 kg

DRUGS (2)
  1. DABRAFENIB [Suspect]
     Indication: MALIGNANT MELANOMA
     Dosage: 150MG TWICE PER DAY
     Route: 048
     Dates: start: 20120824, end: 20130325
  2. PLACEBO [Suspect]
     Indication: MALIGNANT MELANOMA
     Route: 048
     Dates: start: 20120824, end: 20120920

REACTIONS (1)
  - Ejection fraction decreased [Recovered/Resolved]
